FAERS Safety Report 20534233 (Version 1)
Quarter: 2022Q1

REPORT INFORMATION
  Report Type: Spontaneous
  Country: None (occurrence: PT)
  Receive Date: 20220301
  Receipt Date: 20220301
  Transmission Date: 20220424
  Serious: Yes (Other)
  Sender: FDA-Public Use
  Company Number: PT-Canton Laboratories, LLC-2126349

PATIENT
  Age: 51 Year
  Sex: Female

DRUGS (33)
  1. NAPROSYN [Suspect]
     Active Substance: NAPROXEN
     Indication: Complex regional pain syndrome
  2. DULOXETINE [Suspect]
     Active Substance: DULOXETINE
  3. DEFLAZACORT [Suspect]
     Active Substance: DEFLAZACORT
  4. AMITRIPTYLINE HYDROCHLORIDE [Suspect]
     Active Substance: AMITRIPTYLINE HYDROCHLORIDE
  5. FOSAVANCE [Suspect]
     Active Substance: ALENDRONATE SODIUM\CHOLECALCIFEROL
  6. PALEXIA [Suspect]
     Active Substance: TAPENTADOL HYDROCHLORIDE
  7. CLONAZEPAM [Suspect]
     Active Substance: CLONAZEPAM
  8. IBUPROFEN [Suspect]
     Active Substance: IBUPROFEN
  9. DIAZEPAM [Suspect]
     Active Substance: DIAZEPAM
  10. NORTRIPTYLINE HYDROCHLORIDE [Suspect]
     Active Substance: NORTRIPTYLINE HYDROCHLORIDE
  11. CYCLOBENZAPRINE [Suspect]
     Active Substance: CYCLOBENZAPRINE
  12. DULOXETINE [Suspect]
     Active Substance: DULOXETINE
  13. ACEMETACIN [Suspect]
     Active Substance: ACEMETACIN
  14. ETORICOXIB [Suspect]
     Active Substance: ETORICOXIB
  15. VENLAFAXINE [Suspect]
     Active Substance: VENLAFAXINE HYDROCHLORIDE
  16. DEFLAZACORT [Suspect]
     Active Substance: DEFLAZACORT
  17. METAMIZOLE [Suspect]
     Active Substance: METAMIZOLE
  18. AMITRIPTYLINE HYDROCHLORIDE [Suspect]
     Active Substance: AMITRIPTYLINE HYDROCHLORIDE
  19. ACETAMINOPHEN [Suspect]
     Active Substance: ACETAMINOPHEN
  20. VENLAFAXINE [Suspect]
     Active Substance: VENLAFAXINE HYDROCHLORIDE
  21. ETORICOXIB [Suspect]
     Active Substance: ETORICOXIB
  22. NALOXONE HYDROCHLORIDE\OXYCODONE HYDROCHLORIDE [Suspect]
     Active Substance: NALOXONE HYDROCHLORIDE\OXYCODONE HYDROCHLORIDE
  23. VENLAFAXINE HYDROCHLORIDE [Suspect]
     Active Substance: VENLAFAXINE HYDROCHLORIDE
  24. METAMIZOLE MAGNESIUM [Suspect]
     Active Substance: METAMIZOLE MAGNESIUM
  25. TRENTAL [Suspect]
     Active Substance: PENTOXIFYLLINE
  26. LYRICA [Suspect]
     Active Substance: PREGABALIN
  27. TRAZODONE HYDROCHLORIDE [Suspect]
     Active Substance: TRAZODONE HYDROCHLORIDE
  28. PHENYTOIN [Suspect]
     Active Substance: PHENYTOIN
  29. IBUPROFEN [Suspect]
     Active Substance: IBUPROFEN
  30. PENTOSAN POLYSULFATE SODIUM [Suspect]
     Active Substance: PENTOSAN POLYSULFATE SODIUM
  31. BUPRENORPHINE [Suspect]
     Active Substance: BUPRENORPHINE
  32. ACETAMINOPHEN\CODEINE PHOSPHATE [Suspect]
     Active Substance: ACETAMINOPHEN\CODEINE PHOSPHATE
  33. TRAZODONE [Suspect]
     Active Substance: TRAZODONE HYDROCHLORIDE

REACTIONS (19)
  - Neck pain [Unknown]
  - Muscular weakness [Unknown]
  - Suicidal ideation [Unknown]
  - Allodynia [Unknown]
  - Skin atrophy [Unknown]
  - Major depression [Unknown]
  - Hypotonia [Unknown]
  - Pain [Unknown]
  - Joint contracture [Unknown]
  - Diarrhoea [Unknown]
  - Back pain [Unknown]
  - Peripheral coldness [Unknown]
  - Hyperaesthesia [Unknown]
  - Hyperhidrosis [Unknown]
  - Hypokinesia [Unknown]
  - Drug intolerance [Unknown]
  - Pyrexia [Unknown]
  - Oedema [Unknown]
  - Nausea [Unknown]
